FAERS Safety Report 25484008 (Version 2)
Quarter: 2025Q3

REPORT INFORMATION
  Report Type: Spontaneous
  Country: US (occurrence: US)
  Receive Date: 20250626
  Receipt Date: 20250731
  Transmission Date: 20251021
  Serious: No
  Sender: JOHNSON AND JOHNSON
  Company Number: US-JNJFOC-20250633203

PATIENT
  Age: 64 Year
  Sex: Female

DRUGS (3)
  1. SPRAVATO [Suspect]
     Active Substance: ESKETAMINE
     Indication: Product used for unknown indication
     Route: 045
     Dates: start: 20250626, end: 20250626
  2. SPRAVATO [Suspect]
     Active Substance: ESKETAMINE
  3. SPRAVATO [Suspect]
     Active Substance: ESKETAMINE

REACTIONS (2)
  - Accidental exposure to product [Recovered/Resolved]
  - Incorrect dose administered by device [Unknown]

NARRATIVE: CASE EVENT DATE: 20250626
